FAERS Safety Report 15833431 (Version 1)
Quarter: 2019Q1

REPORT INFORMATION
  Report Type: Spontaneous
  Country: US (occurrence: US)
  Receive Date: 20190116
  Receipt Date: 20190116
  Transmission Date: 20190417
  Serious: Yes (Hospitalization, Other)
  Sender: FDA-Public Use
  Company Number: US-BAXTER-2019BAX000642

PATIENT
  Age: 52 Year
  Sex: Male

DRUGS (11)
  1. MELATONIN [Suspect]
     Active Substance: MELATONIN
     Indication: HUNTINGTON^S DISEASE
     Dosage: ON HOSPITAL DAY 21
     Route: 048
  2. FLUOXETINE [Suspect]
     Active Substance: FLUOXETINE HYDROCHLORIDE
     Dosage: ON HOSPITAL DAY 3
     Route: 065
  3. FLUOXETINE [Suspect]
     Active Substance: FLUOXETINE HYDROCHLORIDE
     Dosage: DOSE REDUCED ON HOSPITAL DAY 1
     Route: 065
  4. FLUOXETINE [Suspect]
     Active Substance: FLUOXETINE HYDROCHLORIDE
     Route: 065
  5. LISDEXAMFETAMINE [Suspect]
     Active Substance: LISDEXAMFETAMINE
     Indication: HUNTINGTON^S DISEASE
     Route: 065
  6. FLUOXETINE [Suspect]
     Active Substance: FLUOXETINE HYDROCHLORIDE
     Indication: HUNTINGTON^S DISEASE
     Dosage: FLUOXETINE HAD BEEN TITRATED FROM 20MG TO 60MG DAILY OVER A THREE-MONTH PERIOD AND CONTINUED UNTIL A
     Route: 065
  7. FLUCONAZOLE INJECTION, USP [Suspect]
     Active Substance: FLUCONAZOLE
     Indication: ONYCHOMYCOSIS
     Route: 065
  8. CLONAZEPAM. [Concomitant]
     Active Substance: CLONAZEPAM
     Route: 065
  9. CLONAZEPAM. [Concomitant]
     Active Substance: CLONAZEPAM
     Indication: HUNTINGTON^S DISEASE
     Dosage: AT BEDTIME?ON HOSPITAL DAY 8
     Route: 065
  10. CLONAZEPAM. [Concomitant]
     Active Substance: CLONAZEPAM
     Dosage: AT BEDTIME (REDUCED DOSE)
     Route: 065
  11. OLANZAPINE. [Concomitant]
     Active Substance: OLANZAPINE
     Indication: HUNTINGTON^S DISEASE
     Dosage: NIGHTLY
     Route: 065

REACTIONS (4)
  - Drug level increased [Recovering/Resolving]
  - Condition aggravated [Recovering/Resolving]
  - Choreoathetosis [Recovering/Resolving]
  - Drug interaction [Recovering/Resolving]
